FAERS Safety Report 18907686 (Version 5)
Quarter: 2021Q3

REPORT INFORMATION
  Report Type: Other
  Country: JP (occurrence: JP)
  Receive Date: 20210218
  Receipt Date: 20210730
  Transmission Date: 20211014
  Serious: Yes (Hospitalization, Other)
  Sender: FDA-Public Use
  Company Number: JP-ROCHE-2712422

PATIENT
  Age: 44 Year
  Sex: Male
  Weight: 63.6 kg

DRUGS (7)
  1. CARBOPLATIN. [Concomitant]
     Active Substance: CARBOPLATIN
     Indication: ADENOSQUAMOUS CELL LUNG CANCER
     Dosage: DOSE INTERVAL UNCERTAINTY
     Route: 041
     Dates: start: 20201020
  2. ALIMTA [Concomitant]
     Active Substance: PEMETREXED DISODIUM
     Indication: ADENOSQUAMOUS CELL LUNG CANCER
     Dosage: DOSE INTERVAL UNCERTAINTY
     Route: 041
     Dates: start: 20201020
  3. ALIMTA [Concomitant]
     Active Substance: PEMETREXED DISODIUM
     Dosage: DOSE INTERVAL UNCERTAINTY
     Route: 041
     Dates: start: 20210119
  4. ATEZOLIZUMAB. [Suspect]
     Active Substance: ATEZOLIZUMAB
     Route: 041
     Dates: end: 20210119
  5. CARBOPLATIN. [Concomitant]
     Active Substance: CARBOPLATIN
     Dosage: DOSE INTERVAL UNCERTAINTY
     Route: 041
     Dates: start: 20210119
  6. ALIMTA [Concomitant]
     Active Substance: PEMETREXED DISODIUM
     Dosage: DOSE INTERVAL UNCERTAINTY
     Route: 041
     Dates: start: 20210216
  7. ATEZOLIZUMAB. [Suspect]
     Active Substance: ATEZOLIZUMAB
     Indication: ADENOSQUAMOUS CELL LUNG CANCER
     Route: 041
     Dates: start: 20201020

REACTIONS (3)
  - Encephalitis [Recovered/Resolved]
  - Amylase increased [Recovered/Resolved]
  - Blood creatine phosphokinase increased [Recovered/Resolved]

NARRATIVE: CASE EVENT DATE: 20201102
